FAERS Safety Report 7261131 (Version 2)
Quarter: 2013Q1

REPORT INFORMATION
  Report Type: Spontaneous
  Country: US (occurrence: US)
  Receive Date: 20100129
  Receipt Date: 20130325
  Transmission Date: 20140127
  Serious: Yes (Hospitalization, Other)
  Sender: FDA-Public Use
  Company Number: US-PFIZER INC-2010007294

PATIENT
  Age: 55 Year
  Sex: Female
  Weight: 91.4 kg

DRUGS (4)
  1. ZIPRASIDONE HCL [Suspect]
     Dosage: 6 G
     Route: 048
  2. TRAZODONE HCL [Suspect]
     Dosage: UNK
     Route: 048
  3. FLUOXETINE HCL [Suspect]
     Dosage: 20MG/DAY
     Route: 048
  4. BENZTROPINE MESYLATE [Suspect]
     Dosage: 1MG/ DAY
     Route: 048

REACTIONS (12)
  - Overdose [Recovering/Resolving]
  - Torsade de pointes [Recovered/Resolved]
  - Suicide attempt [Recovering/Resolving]
  - Ventricular fibrillation [Recovering/Resolving]
  - Electrocardiogram QT prolonged [Recovering/Resolving]
  - Hypokalaemia [Recovered/Resolved]
  - Hypomagnesaemia [Recovered/Resolved]
  - Diarrhoea [Unknown]
  - Nausea [Unknown]
  - Vomiting [Unknown]
  - Dry mouth [Unknown]
  - Mydriasis [Unknown]
